FAERS Safety Report 7800887-6 (Version None)
Quarter: 2011Q4

REPORT INFORMATION
  Report Type: 
  Country: None (occurrence: None)
  Receive Date: 20111006
  Receipt Date: 20110928
  Transmission Date: 20120403
  Serious: Yes (Hospitalization)
  Sender: FDA-Public Use
  Company Number: JP-MERCK-1110USA00346

PATIENT
  Age: 66 Year
  Sex: Male

DRUGS (4)
  1. TAXOL [Concomitant]
     Route: 042
  2. DECADRON [Suspect]
     Indication: PROSTATE CANCER
     Route: 048
  3. ACTOS [Concomitant]
     Route: 048
     Dates: start: 20100901
  4. BASEN [Suspect]
     Indication: TYPE 2 DIABETES MELLITUS
     Route: 048
     Dates: start: 20100901

REACTIONS (2)
  - PNEUMATOSIS INTESTINALIS [None]
  - TYPE 2 DIABETES MELLITUS [None]
